FAERS Safety Report 5484442-1 (Version None)
Quarter: 2007Q4

REPORT INFORMATION
  Report Type: 
  Country: None (occurrence: None)
  Receive Date: 20071012
  Receipt Date: 20071003
  Transmission Date: 20080405
  Serious: Yes (Other)
  Sender: FDA-Public Use
  Company Number: JP-MERCK-0710USA01309

PATIENT
  Age: 53 Year
  Sex: Male

DRUGS (6)
  1. PEPCID RPD [Suspect]
     Route: 048
  2. PROCYLIN [Suspect]
     Route: 065
  3. SIGMART [Suspect]
     Route: 065
  4. METOPROLOL TARTRATE [Suspect]
     Route: 065
  5. PREDNISOLONE [Suspect]
     Route: 065
  6. [THERAPY UNSPECIFIED] [Suspect]
     Route: 065

REACTIONS (2)
  - LOEFFLER'S SYNDROME [None]
  - THROMBOCYTOPENIC PURPURA [None]
